FAERS Safety Report 24893906 (Version 1)
Quarter: 2025Q1

REPORT INFORMATION
  Report Type: Spontaneous
  Country: CA (occurrence: CA)
  Receive Date: 20250128
  Receipt Date: 20250128
  Transmission Date: 20250409
  Serious: Yes (Other)
  Sender: ACCORD
  Company Number: None

PATIENT
  Age: 59 Year

DRUGS (1)
  1. METHOTREXATE SODIUM [Suspect]
     Active Substance: METHOTREXATE SODIUM
     Indication: Granulomatosis with polyangiitis
     Route: 058

REACTIONS (13)
  - Pleural effusion [Unknown]
  - Arthralgia [Unknown]
  - Alanine aminotransferase increased [Unknown]
  - Haematocrit decreased [Unknown]
  - Weight decreased [Unknown]
  - Drug ineffective [Unknown]
  - Haemoglobin decreased [Unknown]
  - Off label use [Unknown]
  - Protein urine [Unknown]
  - Blood urine [Unknown]
  - Red blood cell count decreased [Unknown]
  - Renal disorder [Unknown]
  - Blood creatinine increased [Unknown]
